FAERS Safety Report 14519580 (Version 1)
Quarter: 2018Q1

REPORT INFORMATION
  Report Type: Spontaneous
  Country: US (occurrence: US)
  Receive Date: 20180212
  Receipt Date: 20180212
  Transmission Date: 20180509
  Serious: Yes (Life-Threatening, Hospitalization, Other)
  Sender: FDA-Public Use
  Company Number: US-BAYER-2018-023307

PATIENT
  Age: 71 Year
  Sex: Male
  Weight: 81.63 kg

DRUGS (2)
  1. ENALAPRIL [Concomitant]
     Active Substance: ENALAPRIL
     Dosage: UNK
  2. ALEVE [Suspect]
     Active Substance: NAPROXEN SODIUM
     Indication: PAIN
     Dosage: 2 DF, QD
     Route: 048
     Dates: start: 201603, end: 20170618

REACTIONS (7)
  - Gastric ulcer [Unknown]
  - Sleep disorder [Unknown]
  - Gastrointestinal haemorrhage [Unknown]
  - Product use issue [Unknown]
  - Hypotension [Unknown]
  - Haematochezia [Unknown]
  - Malaise [Unknown]

NARRATIVE: CASE EVENT DATE: 201603
